FAERS Safety Report 13330627 (Version 2)
Quarter: 2017Q4

REPORT INFORMATION
  Report Type: Spontaneous
  Country: US (occurrence: US)
  Receive Date: 20170314
  Receipt Date: 20171130
  Transmission Date: 20180320
  Serious: No
  Sender: FDA-Public Use
  Company Number: US-TEVA-740528ACC

PATIENT
  Sex: Male

DRUGS (6)
  1. SIMVASTATIN 10MG [Concomitant]
     Active Substance: SIMVASTATIN
  2. ALPRAZOLAM ORAL DISPENSING TABLET [Suspect]
     Active Substance: ALPRAZOLAM
     Indication: ANXIETY
     Dosage: .5 MILLIGRAM DAILY;
     Dates: start: 2017
  3. ALLEGRA 180MG [Concomitant]
  4. PANTOPRAZOLE 40MG [Concomitant]
     Active Substance: PANTOPRAZOLE SODIUM
  5. ZOLOFT 200MG [Concomitant]
  6. LOSARTAN. [Concomitant]
     Active Substance: LOSARTAN

REACTIONS (3)
  - Anxiety [Recovered/Resolved]
  - Drug ineffective [Unknown]
  - Palpitations [Recovered/Resolved]
